FAERS Safety Report 7810853-2 (Version None)
Quarter: 2011Q4

REPORT INFORMATION
  Report Type: 
  Country: None (occurrence: None)
  Receive Date: 20111011
  Receipt Date: 20110922
  Transmission Date: 20120403
  Serious: No
  Sender: FDA-Public Use
  Company Number: PHHY2011GB64430

PATIENT
  Age: 65 Year
  Sex: Male

DRUGS (4)
  1. AMINOPYRIDINE (FAMPRIDINE) [Suspect]
     Dosage: 1 DF, BID
     Dates: start: 20110623
  2. ACETAMINOPHEN [Concomitant]
  3. ZANAFLEX [Suspect]
     Indication: MUSCLE SPASTICITY
     Dosage: 8 MG BID ORAL
     Route: 048
     Dates: start: 20050321
  4. COPAXONE [Concomitant]

REACTIONS (4)
  - MUSCLE SPASTICITY [None]
  - QUALITY OF LIFE DECREASED [None]
  - DRUG INTERACTION [None]
  - DRUG INEFFECTIVE [None]
